FAERS Safety Report 19496291 (Version 1)
Quarter: 2021Q3

REPORT INFORMATION
  Report Type: Spontaneous
  Country: US (occurrence: US)
  Receive Date: 20210702
  Receipt Date: 20210702
  Transmission Date: 20211014
  Serious: No
  Sender: FDA-Public Use
  Company Number: None

PATIENT
  Age: 23 Year
  Sex: Female
  Weight: 60.3 kg

DRUGS (1)
  1. CIPROFLOXACIN. [Suspect]
     Active Substance: CIPROFLOXACIN
     Indication: GASTRITIS
     Dosage: ?          QUANTITY:14 TABLET(S);?
     Route: 048
     Dates: start: 20210228, end: 20210302

REACTIONS (5)
  - Muscle tightness [None]
  - Muscular weakness [None]
  - Abdominal pain upper [None]
  - Muscle spasms [None]
  - Tendon pain [None]

NARRATIVE: CASE EVENT DATE: 20210228
